FAERS Safety Report 14148069 (Version 3)
Quarter: 2018Q3

REPORT INFORMATION
  Report Type: Report from Study
  Country: JP (occurrence: JP)
  Receive Date: 20171101
  Receipt Date: 20180709
  Transmission Date: 20181010
  Serious: Yes (Life-Threatening, Hospitalization, Other)
  Sender: FDA-Public Use
  Company Number: JP-ACTELION-A-CH2017-151152

PATIENT
  Age: 1 Year
  Sex: Male
  Weight: 8.42 kg

DRUGS (48)
  1. UPTRAVI [Suspect]
     Active Substance: SELEXIPAG
     Dosage: 10 ?G, BID
     Route: 048
     Dates: start: 20170806, end: 20170806
  2. HYDROCHLOROTHIAZIDE. [Concomitant]
     Active Substance: HYDROCHLOROTHIAZIDE
     Indication: CARDIAC FAILURE
     Dosage: 7.5 MG, QD
     Route: 051
     Dates: end: 20170801
  3. FAMOTIDINE. [Concomitant]
     Active Substance: FAMOTIDINE
     Indication: UPPER GASTROINTESTINAL HAEMORRHAGE
     Dosage: 4 MG, QD
     Route: 051
     Dates: end: 20170801
  4. WARFARIN [Concomitant]
     Active Substance: WARFARIN
     Indication: VASCULAR STENT THROMBOSIS
     Dosage: 2.1 MG, QD
     Route: 051
     Dates: end: 20170801
  5. DOBUTREX [Concomitant]
     Active Substance: DOBUTAMINE HYDROCHLORIDE
     Dosage: UNK
     Dates: start: 20170801, end: 20170816
  6. BOSMIN [Concomitant]
     Active Substance: EPINEPHRINE
     Dosage: UNK
     Dates: start: 20170801, end: 20170816
  7. UPTRAVI [Suspect]
     Active Substance: SELEXIPAG
     Dosage: 60 ?G, BID
     Route: 048
     Dates: start: 20171011, end: 20171017
  8. OPSUMIT [Concomitant]
     Active Substance: MACITENTAN
     Dosage: 0.01 MG, QD
     Route: 051
     Dates: start: 20170803
  9. ADCIRCA [Concomitant]
     Active Substance: TADALAFIL
     Indication: PULMONARY ARTERIAL HYPERTENSION
     Dosage: 8 MG, QD
     Route: 051
     Dates: end: 20170801
  10. UPTRAVI [Suspect]
     Active Substance: SELEXIPAG
     Dosage: 5 ?G, BID
     Route: 048
     Dates: start: 20170803, end: 20170804
  11. UPTRAVI [Suspect]
     Active Substance: SELEXIPAG
     Dosage: 120 ?G, BID
     Route: 048
     Dates: start: 20171025, end: 20171031
  12. WARFARIN [Concomitant]
     Active Substance: WARFARIN
     Dosage: 0.5 MG, QD
     Route: 051
     Dates: start: 20170814
  13. CEFAZOLIN [Concomitant]
     Active Substance: CEFAZOLIN
     Indication: DEVICE RELATED INFECTION
     Dosage: 600 MG, QD
     Route: 042
     Dates: start: 20170508, end: 20170509
  14. UPTRAVI [Suspect]
     Active Substance: SELEXIPAG
     Dosage: 20 ?G, BID
     Route: 048
     Dates: start: 20170807, end: 20170823
  15. UPTRAVI [Suspect]
     Active Substance: SELEXIPAG
     Dosage: 160 ?G, BID
     Route: 048
     Dates: start: 20171101, end: 20171107
  16. UPTRAVI [Suspect]
     Active Substance: SELEXIPAG
     Dosage: 310 ?G, BID
     Route: 048
     Dates: start: 20171129, end: 20171221
  17. UPTRAVI [Suspect]
     Active Substance: SELEXIPAG
     Dosage: 330 ?G, BID
     Route: 048
     Dates: start: 20180125
  18. FUROSEMIDE. [Concomitant]
     Active Substance: FUROSEMIDE
     Indication: CARDIAC FAILURE
     Dosage: 15 MG, QD
     Route: 051
     Dates: end: 20170801
  19. FUROSEMIDE. [Concomitant]
     Active Substance: FUROSEMIDE
     Dosage: 18 MG, QD
     Route: 051
     Dates: start: 20170803
  20. ALDACTONE A [Concomitant]
     Active Substance: SPIRONOLACTONE
     Dosage: 18 MG, QD
     Route: 051
     Dates: start: 20170803
  21. FAMOTIDINE. [Concomitant]
     Active Substance: FAMOTIDINE
     Dosage: 5 MG, QD
     Route: 051
     Dates: start: 20170801, end: 20170803
  22. HEPARIN [Concomitant]
     Active Substance: HEPARIN SODIUM
     Indication: ANTICOAGULANT THERAPY
     Dosage: 5760 IU, QD
     Route: 042
     Dates: start: 20170519, end: 20170523
  23. HEPARIN [Concomitant]
     Active Substance: HEPARIN SODIUM
     Dosage: UNK
     Route: 042
     Dates: start: 20170802, end: 20171011
  24. DORMICUM [Concomitant]
     Dosage: 2 MG/KG, UNK
     Dates: start: 20170801, end: 20170809
  25. UPTRAVI [Suspect]
     Active Substance: SELEXIPAG
     Dosage: 9.5 ?G, BID
     Route: 048
     Dates: start: 20170413, end: 20170801
  26. UPTRAVI [Suspect]
     Active Substance: SELEXIPAG
     Dosage: 80 ?G, BID
     Route: 048
     Dates: start: 20171018, end: 20171024
  27. UPTRAVI [Suspect]
     Active Substance: SELEXIPAG
     Dosage: 200 ?G, BID
     Route: 048
     Dates: start: 20171108, end: 20171114
  28. UPTRAVI [Suspect]
     Active Substance: SELEXIPAG
     Dosage: 240 ?G, BID
     Route: 048
     Dates: start: 20171115, end: 20171121
  29. UPTRAVI [Suspect]
     Active Substance: SELEXIPAG
     Dosage: 320 ?G, BID
     Route: 048
     Dates: start: 20171222, end: 20180124
  30. OPSUMIT [Concomitant]
     Active Substance: MACITENTAN
     Indication: PULMONARY ARTERIAL HYPERTENSION
     Dosage: 1.6 MG, QD
     Route: 051
     Dates: end: 20170801
  31. HYDROCHLOROTHIAZIDE. [Concomitant]
     Active Substance: HYDROCHLOROTHIAZIDE
     Dosage: 8 MG, QD
     Route: 051
     Dates: start: 20170803
  32. CARBOCISTEINE [Concomitant]
     Active Substance: CARBOCYSTEINE
     Indication: UPPER RESPIRATORY TRACT INFLAMMATION
     Dosage: 200 MG, QD
     Route: 051
     Dates: end: 20170801
  33. MILRINONE [Concomitant]
     Active Substance: MILRINONE
     Indication: CARDIAC FAILURE
     Dosage: UNK
     Dates: start: 20170801, end: 20170802
  34. VECURONIUM [Concomitant]
     Active Substance: VECURONIUM BROMIDE
     Dosage: 2 MG/KG, UNK
     Dates: start: 20170801, end: 20170803
  35. UPTRAVI [Suspect]
     Active Substance: SELEXIPAG
     Indication: PULMONARY ARTERIAL HYPERTENSION
     Dosage: 9 ?G, BID
     Route: 048
     Dates: start: 20170316, end: 20170412
  36. UPTRAVI [Suspect]
     Active Substance: SELEXIPAG
     Dosage: 7.5 ?G, BID
     Route: 048
     Dates: start: 20170805, end: 20170805
  37. UPTRAVI [Suspect]
     Active Substance: SELEXIPAG
     Dosage: 40 ?G, BID
     Route: 048
     Dates: start: 20170824, end: 20171010
  38. UPTRAVI [Suspect]
     Active Substance: SELEXIPAG
     Dosage: 280 ?G, BID
     Route: 048
     Dates: start: 20171122, end: 20171128
  39. ALDACTONE A [Concomitant]
     Active Substance: SPIRONOLACTONE
     Indication: CARDIAC FAILURE
     Dosage: 15 MG, QD
     Route: 051
     Dates: end: 20170801
  40. MOSAPRIDE CITRATE [Concomitant]
     Active Substance: MOSAPRIDE CITRATE
     Indication: GASTROOESOPHAGEAL REFLUX DISEASE
     Dosage: 2 MG, QD
     Route: 051
     Dates: end: 20170801
  41. VANCOMYCIN [Concomitant]
     Active Substance: VANCOMYCIN
     Indication: CELLULITIS
     Dosage: 420 MG, QD
     Route: 042
     Dates: start: 20170213, end: 20170217
  42. CEFAZOLIN [Concomitant]
     Active Substance: CEFAZOLIN
     Dosage: 1020 MG, QD
     Route: 042
     Dates: start: 20170801, end: 20170804
  43. ADCIRCA [Concomitant]
     Active Substance: TADALAFIL
     Dosage: 5 MG, QD
     Route: 051
     Dates: start: 20170803
  44. LANSOPRAZOLE. [Concomitant]
     Active Substance: LANSOPRAZOLE
     Indication: UPPER GASTROINTESTINAL HAEMORRHAGE
     Dosage: 4.5 MG, QD
     Route: 051
     Dates: end: 20170801
  45. UPTRAVI [Suspect]
     Active Substance: SELEXIPAG
     Dosage: 8 ?G, BID
     Route: 048
     Dates: start: 20170206, end: 20170315
  46. POTASSIUM CHLORIDE. [Concomitant]
     Active Substance: POTASSIUM CHLORIDE
     Indication: HYPOKALAEMIA
     Dosage: 0.4 G, QD
     Route: 051
     Dates: end: 20170801
  47. FERRIC PYROPHOSPHATE [Concomitant]
     Active Substance: FERRIC PYROPHOSPHATE
     Indication: IRON DEFICIENCY ANAEMIA
     Dosage: 8 ML, QD
     Route: 051
     Dates: end: 20170801
  48. INOVAN [Concomitant]
     Active Substance: DOPAMINE HYDROCHLORIDE
     Dosage: UNK
     Dates: start: 20170801, end: 20170816

REACTIONS (6)
  - Hypoxia [Recovering/Resolving]
  - Adenoidal hypertrophy [Recovering/Resolving]
  - Femur fracture [Recovering/Resolving]
  - Erythromelalgia [Recovering/Resolving]
  - Adenoidectomy [Unknown]
  - Pneumonia [Recovering/Resolving]

NARRATIVE: CASE EVENT DATE: 2017
